FAERS Safety Report 7430320-8 (Version None)
Quarter: 2011Q2

REPORT INFORMATION
  Report Type: 
  Country: None (occurrence: None)
  Receive Date: 20110419
  Receipt Date: 20110419
  Transmission Date: 20111010
  Serious: Yes (Life-Threatening, Hospitalization)
  Sender: FDA-Public Use
  Company Number: None

PATIENT
  Age: 37 Year
  Sex: Male

DRUGS (1)
  1. CEFAZOLIN [Suspect]
     Indication: ANTIBIOTIC PROPHYLAXIS
     Dosage: 1GM ONCE IV
     Route: 042
     Dates: start: 20110317, end: 20110327

REACTIONS (4)
  - RASH MACULO-PAPULAR [None]
  - ANGIOEDEMA [None]
  - HYPOTENSION [None]
  - PULSE ABSENT [None]
